FAERS Safety Report 19910753 (Version 5)
Quarter: 2022Q2

REPORT INFORMATION
  Report Type: Report from Study
  Country: US (occurrence: US)
  Receive Date: 20211004
  Receipt Date: 20220411
  Transmission Date: 20220721
  Serious: No
  Sender: FDA-Public Use
  Company Number: US-NOVARTISTESTPH-NVSC2021US222491

PATIENT
  Sex: Male

DRUGS (2)
  1. ENTRESTO [Suspect]
     Active Substance: SACUBITRIL\VALSARTAN
     Indication: Product used for unknown indication
     Dosage: 1 DF, BID, (49/51 MG)
     Route: 065
  2. ENTRESTO [Suspect]
     Active Substance: SACUBITRIL\VALSARTAN
     Route: 065

REACTIONS (8)
  - Gait disturbance [Unknown]
  - Illness [Unknown]
  - Polydipsia [Unknown]
  - Dyspnoea [Unknown]
  - Ejection fraction abnormal [Recovering/Resolving]
  - Fatigue [Unknown]
  - Blood pressure decreased [Unknown]
  - Fluid retention [Unknown]
